FAERS Safety Report 26143618 (Version 1)
Quarter: 2025Q4

REPORT INFORMATION
  Report Type: Spontaneous
  Country: US (occurrence: US)
  Receive Date: 20251211
  Receipt Date: 20251211
  Transmission Date: 20260118
  Serious: Yes (Other)
  Sender: AUROBINDO
  Company Number: US-MLMSERVICE-20251121-PI722330-00187-1

PATIENT
  Age: 69 Year
  Sex: Female

DRUGS (3)
  1. KETOCONAZOLE [Suspect]
     Active Substance: KETOCONAZOLE
     Indication: Hyperadrenocorticism
     Dosage: 200 MILLIGRAM, TWO TIMES A DAY
     Route: 065
  2. KETOCONAZOLE [Suspect]
     Active Substance: KETOCONAZOLE
     Indication: Pituitary-dependent Cushing^s syndrome
     Dosage: 100 MILLIGRAM, TWO TIMES A DAY
     Route: 065
  3. HYDROCORTISONE [Concomitant]
     Active Substance: HYDROCORTISONE
     Indication: Product used for unknown indication
     Dosage: 50 MILLIGRAM

REACTIONS (1)
  - Adrenal insufficiency [Recovering/Resolving]
